FAERS Safety Report 24846956 (Version 2)
Quarter: 2025Q3

REPORT INFORMATION
  Report Type: Report from Study
  Country: US (occurrence: US)
  Receive Date: 20250115
  Receipt Date: 20250802
  Transmission Date: 20251021
  Serious: Yes (Other)
  Sender: ALEXION PHARMACEUTICALS
  Company Number: US-AstraZeneca-CH-00782429A

PATIENT
  Sex: Male
  Weight: 77.098 kg

DRUGS (1)
  1. ULTOMIRIS [Suspect]
     Active Substance: RAVULIZUMAB-CWVZ
     Indication: Myasthenia gravis
     Route: 065

REACTIONS (6)
  - Diabetes mellitus [Unknown]
  - Cardiac disorder [Unknown]
  - Abnormal loss of weight [Unknown]
  - Gastrointestinal inflammation [Unknown]
  - Anaemia [Unknown]
  - Fatigue [Unknown]
